FAERS Safety Report 20546696 (Version 1)
Quarter: 2022Q1

REPORT INFORMATION
  Report Type: Spontaneous
  Country: FR (occurrence: FR)
  Receive Date: 20220303
  Receipt Date: 20220303
  Transmission Date: 20220424
  Serious: Yes (Other)
  Sender: FDA-Public Use
  Company Number: FR-AMERICAN REGENT INC-2022000507

PATIENT
  Age: 40 Year
  Sex: Female
  Weight: 56 kg

DRUGS (1)
  1. FERINJECT [Suspect]
     Active Substance: FERRIC CARBOXYMALTOSE
     Indication: Anaemia
     Dosage: UNK
     Route: 042
     Dates: start: 20220120, end: 20220120

REACTIONS (11)
  - Confusional state [Not Recovered/Not Resolved]
  - Palpitations [Not Recovered/Not Resolved]
  - Hypotension [Not Recovered/Not Resolved]
  - Tachycardia [Not Recovered/Not Resolved]
  - Speech disorder [Not Recovered/Not Resolved]
  - Myalgia [Not Recovered/Not Resolved]
  - Asthenia [Not Recovered/Not Resolved]
  - Hypoaesthesia [Not Recovered/Not Resolved]
  - Pyrexia [Not Recovered/Not Resolved]
  - Erythema [Not Recovered/Not Resolved]
  - Headache [Not Recovered/Not Resolved]

NARRATIVE: CASE EVENT DATE: 20220120
